FAERS Safety Report 13683229 (Version 1)
Quarter: 2017Q2

REPORT INFORMATION
  Report Type: Report from Study
  Country: US (occurrence: US)
  Receive Date: 20170623
  Receipt Date: 20170623
  Transmission Date: 20170830
  Serious: No
  Sender: FDA-Public Use
  Company Number: US-IPSEN BIOPHARMACEUTICALS, INC.-2016-06945

PATIENT
  Age: 59 Year
  Sex: Female
  Weight: 92 kg

DRUGS (22)
  1. GLUCOSAMINE CHONDROITIN [Concomitant]
     Active Substance: CHONDROITIN SULFATE (BOVINE)\GLUCOSAMINE HYDROCHLORIDE
  2. GABAPENTIN. [Concomitant]
     Active Substance: GABAPENTIN
     Route: 048
  3. VITAMIN D3 [Concomitant]
     Active Substance: CHOLECALCIFEROL
     Route: 048
  4. COZAAR [Concomitant]
     Active Substance: LOSARTAN POTASSIUM
  5. ZOLOFT [Concomitant]
     Active Substance: SERTRALINE HYDROCHLORIDE
     Route: 048
  6. PRILOSEC [Concomitant]
     Active Substance: OMEPRAZOLE MAGNESIUM
     Route: 048
  7. OSPHENA [Concomitant]
     Active Substance: OSPEMIFENE
     Route: 048
  8. DYSPORT [Suspect]
     Active Substance: ABOBOTULINUMTOXINA
     Indication: TORTICOLLIS
     Dosage: 500 IU
     Route: 030
     Dates: start: 20160413, end: 20160413
  9. DYSPORT [Suspect]
     Active Substance: ABOBOTULINUMTOXINA
     Indication: TORTICOLLIS
  10. DYSPORT [Suspect]
     Active Substance: ABOBOTULINUMTOXINA
     Indication: MIGRAINE
  11. FLEXERIL [Concomitant]
     Active Substance: CYCLOBENZAPRINE HYDROCHLORIDE
  12. VERAPAMIL [Concomitant]
     Active Substance: VERAPAMIL HYDROCHLORIDE
     Route: 048
  13. DYSPORT [Suspect]
     Active Substance: ABOBOTULINUMTOXINA
     Indication: MIGRAINE
  14. DYSPORT [Suspect]
     Active Substance: ABOBOTULINUMTOXINA
     Indication: TORTICOLLIS
     Dosage: 600 IU
     Route: 058
     Dates: start: 20160119, end: 20160119
  15. DYSPORT [Suspect]
     Active Substance: ABOBOTULINUMTOXINA
     Indication: PRODUCT USE IN UNAPPROVED INDICATION
  16. BUPROPION. [Concomitant]
     Active Substance: BUPROPION
     Route: 048
  17. SYMBICORT [Concomitant]
     Active Substance: BUDESONIDE\FORMOTEROL FUMARATE DIHYDRATE
     Dosage: 80/4.5 UCG
     Route: 055
  18. TRAZODONE [Concomitant]
     Active Substance: TRAZODONE HYDROCHLORIDE
     Dosage: 1 TO 3 EVERY DAY
     Route: 048
  19. SPIRONOLACTONE. [Concomitant]
     Active Substance: SPIRONOLACTONE
     Route: 048
  20. LEVOXYL [Concomitant]
     Active Substance: LEVOTHYROXINE SODIUM
     Route: 048
  21. FISH OIL [Concomitant]
     Active Substance: FISH OIL
  22. GABAPENTIN. [Concomitant]
     Active Substance: GABAPENTIN
     Route: 048

REACTIONS (5)
  - Injection site pain [Recovered/Resolved]
  - Headache [Recovered/Resolved]
  - Nausea [Recovered/Resolved]
  - Incorrect route of drug administration [Unknown]
  - Drug effect decreased [Unknown]

NARRATIVE: CASE EVENT DATE: 20160418
